FAERS Safety Report 15145174 (Version 1)
Quarter: 2018Q3

REPORT INFORMATION
  Report Type: Other
  Country: US (occurrence: US)
  Receive Date: 20180713
  Receipt Date: 20180713
  Transmission Date: 20181010
  Serious: No
  Sender: FDA-Public Use
  Company Number: US-INTERCEPT-PMOCA2017000779

PATIENT

DRUGS (6)
  1. OCALIVA [Suspect]
     Active Substance: OBETICHOLIC ACID
     Indication: PRIMARY BILIARY CHOLANGITIS
     Dosage: 5 MG, QD
     Route: 048
     Dates: start: 201703, end: 20170319
  2. URSODIOL. [Concomitant]
     Active Substance: URSODIOL
     Dosage: 1250 MG, QD
     Route: 048
  3. ASPIRIN. [Concomitant]
     Active Substance: ASPIRIN
     Dosage: 81 MG, QD
     Route: 048
  4. XIFAXAN [Concomitant]
     Active Substance: RIFAXIMIN
     Dosage: 550 MG, BID
     Route: 048
  5. OMEPRAZOLE. [Concomitant]
     Active Substance: OMEPRAZOLE
     Dosage: 40 MG, QD
     Route: 048
  6. FUROSEMIDE. [Concomitant]
     Active Substance: FUROSEMIDE
     Dosage: 20 MG, QD
     Route: 048

REACTIONS (7)
  - Splenomegaly [Unknown]
  - Rash generalised [Unknown]
  - Dyspnoea exertional [Unknown]
  - Fatigue [Unknown]
  - Pruritus generalised [Recovered/Resolved]
  - Ascites [Unknown]
  - Insomnia [Unknown]
